FAERS Safety Report 22388243 (Version 1)
Quarter: 2023Q2

REPORT INFORMATION
  Report Type: Spontaneous
  Country: IT (occurrence: IT)
  Receive Date: 20230531
  Receipt Date: 20230531
  Transmission Date: 20230722
  Serious: Yes (Hospitalization, Other)
  Sender: FDA-Public Use
  Company Number: IT-Accord-360163

PATIENT
  Age: 51 Year
  Sex: Male
  Weight: 93 kg

DRUGS (4)
  1. TOPIRAMATE [Suspect]
     Active Substance: TOPIRAMATE
     Indication: Product used for unknown indication
     Dosage: STRENGTH: 100 MG
  2. LEVOTHYROXINE [Concomitant]
     Active Substance: LEVOTHYROXINE
  3. OXCARBAZEPINE [Concomitant]
     Active Substance: OXCARBAZEPINE
  4. CLOBAZAM [Concomitant]
     Active Substance: CLOBAZAM

REACTIONS (7)
  - Acidosis hyperchloraemic [Recovered/Resolved]
  - Toxicity to various agents [Unknown]
  - Renal impairment [Recovered/Resolved]
  - Depression [Recovered/Resolved]
  - Seizure [Recovered/Resolved]
  - Haemodynamic instability [Recovered/Resolved]
  - Loss of consciousness [Recovered/Resolved]
